FAERS Safety Report 8775939 (Version 3)
Quarter: 2012Q4

REPORT INFORMATION
  Report Type: 
  Country: PL (occurrence: PL)
  Receive Date: 20120910
  Receipt Date: 20121016
  Transmission Date: 20130627
  Serious: Yes (Other)
  Sender: FDA-Public Use
  Company Number: PL-ROCHE-1114294

PATIENT
  Age: 57 Year
  Sex: Male

DRUGS (8)
  1. LUCENTIS [Suspect]
     Indication: PTERYGIUM
     Route: 050
     Dates: start: 20090929
  2. HYALURONATE SODIUM [Concomitant]
  3. HEPARIN [Concomitant]
  4. LIGNOCAINE [Concomitant]
  5. TOBRAMYCIN [Concomitant]
  6. DEXAMETHASONE [Concomitant]
  7. OFLOXACIN [Concomitant]
  8. DICLOFENAC [Concomitant]

REACTIONS (3)
  - Impaired healing [Recovered/Resolved]
  - Ischaemia [Recovered/Resolved]
  - Corneal disorder [Recovered/Resolved]
